FAERS Safety Report 11009350 (Version 1)
Quarter: 2015Q2

REPORT INFORMATION
  Report Type: Spontaneous
  Country: US (occurrence: US)
  Receive Date: 20150410
  Receipt Date: 20150410
  Transmission Date: 20150821
  Serious: Yes (Other)
  Sender: FDA-Public Use
  Company Number: US-BAYER-2015-091725

PATIENT
  Sex: Female

DRUGS (1)
  1. BETASERON [Suspect]
     Active Substance: INTERFERON BETA-1B

REACTIONS (7)
  - Headache [None]
  - Insomnia [None]
  - Intentional product misuse [None]
  - Pollakiuria [None]
  - Feeling hot [None]
  - Menstrual disorder [None]
  - Depression [None]
